FAERS Safety Report 6961603-3 (Version None)
Quarter: 2010Q3

REPORT INFORMATION
  Report Type: 
  Country: None (occurrence: None)
  Receive Date: 20100901
  Receipt Date: 20100819
  Transmission Date: 20110219
  Serious: Yes (Other)
  Sender: FDA-Public Use
  Company Number: GB-MYLANLABS-2010S1005118

PATIENT
  Age: 31 Year
  Sex: Male

DRUGS (4)
  1. LANSOPRAZOLE [Suspect]
     Indication: REFLUX OESOPHAGITIS
     Route: 048
     Dates: start: 20031001
  2. CLOZARIL [Suspect]
     Indication: SCHIZOPHRENIA
     Route: 048
     Dates: start: 19971110
  3. CLOZARIL [Suspect]
     Route: 048
     Dates: start: 20070129
  4. OXAZEPAM [Concomitant]
     Indication: ANXIETY
     Route: 048
     Dates: start: 20010627

REACTIONS (4)
  - CIRRHOSIS ALCOHOLIC [None]
  - HEPATITIS C VIRUS TEST POSITIVE [None]
  - RASH [None]
  - THROMBOCYTOPENIA [None]
